FAERS Safety Report 14682707 (Version 1)
Quarter: 2018Q1

REPORT INFORMATION
  Report Type: Spontaneous
  Country: US (occurrence: US)
  Receive Date: 20180327
  Receipt Date: 20180327
  Transmission Date: 20180509
  Serious: No
  Sender: FDA-Public Use
  Company Number: US-AUROBINDO-AUR-APL-2017-30372

PATIENT
  Sex: Male
  Weight: 94.35 kg

DRUGS (3)
  1. GABAPENTIN CAPSULES [Suspect]
     Active Substance: GABAPENTIN
     Indication: NEUROPATHY PERIPHERAL
     Dosage: 10 TIMES A DAY (300 MG 10 TIMES A DAY)
     Route: 048
  2. GABAPENTIN CAPSULES [Suspect]
     Active Substance: GABAPENTIN
     Indication: CHRONIC INFLAMMATORY DEMYELINATING POLYRADICULONEUROPATHY
     Dosage: 320 MG, FOUR TIMES/DAY (1 IN MORNING 2 IN AFTERNOON 4 AT BEDTIME)
     Route: 048
     Dates: start: 2015
  3. INSULIN [Concomitant]
     Active Substance: INSULIN NOS

REACTIONS (3)
  - Overdose [Unknown]
  - Fluid retention [Recovered/Resolved]
  - Drug ineffective [Unknown]
